FAERS Safety Report 10674133 (Version 2)
Quarter: 2015Q1

REPORT INFORMATION
  Report Type: Spontaneous
  Country: JP (occurrence: JP)
  Receive Date: 20141224
  Receipt Date: 20150119
  Transmission Date: 20150720
  Serious: Yes (Hospitalization)
  Sender: FDA-Public Use
  Company Number: JP-SA-2014SA175706

PATIENT
  Age: 76 Year
  Sex: Male

DRUGS (5)
  1. DOCETAXEL. [Suspect]
     Active Substance: DOCETAXEL
     Indication: GASTRIC CANCER STAGE IV
     Dosage: 2 COURSES
     Route: 065
  2. S-1 [Suspect]
     Active Substance: GIMERACIL\OTERACIL\TEGAFUR
     Indication: GASTRIC CANCER STAGE IV
     Dosage: 2 COURSES
     Route: 065
  3. CISPLATIN. [Suspect]
     Active Substance: CISPLATIN
     Indication: GASTRIC CANCER STAGE IV
     Dosage: 2 COURSES
     Route: 065
  4. CISPLATIN. [Suspect]
     Active Substance: CISPLATIN
     Indication: GASTRIC CANCER STAGE IV
     Dosage: 2 COURSES
     Route: 065
  5. S-1 [Suspect]
     Active Substance: GIMERACIL\OTERACIL\TEGAFUR
     Indication: GASTRIC CANCER STAGE IV
     Dosage: 2 COURSES
     Route: 065

REACTIONS (10)
  - Fatigue [Recovered/Resolved]
  - Febrile neutropenia [Recovered/Resolved]
  - Anaemia [None]
  - Headache [Recovered/Resolved]
  - Dehydration [None]
  - White blood cell count decreased [Recovered/Resolved]
  - Decreased appetite [None]
  - Activities of daily living impaired [Recovered/Resolved]
  - Pyrexia [Recovered/Resolved]
  - Heart rate increased [Recovered/Resolved]
